FAERS Safety Report 7389824-9 (Version None)
Quarter: 2011Q2

REPORT INFORMATION
  Report Type: 
  Country: None (occurrence: None)
  Receive Date: 20110401
  Receipt Date: 20110328
  Transmission Date: 20111010
  Serious: Yes (Hospitalization)
  Sender: FDA-Public Use
  Company Number: US-SANOFI-AVENTIS-2011SA019202

PATIENT
  Age: 88 Year
  Sex: Male

DRUGS (2)
  1. OPTICLICK [Suspect]
  2. APIDRA [Suspect]
     Route: 058

REACTIONS (1)
  - COGNITIVE DISORDER [None]
